FAERS Safety Report 11539339 (Version 2)
Quarter: 2015Q3

REPORT INFORMATION
  Report Type: Spontaneous
  Country: GB (occurrence: GB)
  Receive Date: 20150923
  Receipt Date: 20150923
  Transmission Date: 20151125
  Serious: Yes (Death, Hospitalization)
  Sender: FDA-Public Use
  Company Number: GB-FRESENIUS KABI-FK201504470

PATIENT
  Age: 54 Year
  Sex: Female

DRUGS (9)
  1. CALCICHEW D3 [Concomitant]
     Active Substance: CALCIUM\CHOLECALCIFEROL
  2. TRAMADOL. [Concomitant]
     Active Substance: TRAMADOL
  3. CERTOLIZUMAB [Suspect]
     Active Substance: CERTOLIZUMAB
     Indication: RHEUMATOID ARTHRITIS
     Dates: start: 20140509
  4. ALENDRONIC ACID [Concomitant]
     Active Substance: ALENDRONIC ACID
  5. ASPIRIN. [Concomitant]
     Active Substance: ASPIRIN
  6. LISINOPRIL. [Concomitant]
     Active Substance: LISINOPRIL
  7. METHOTREXATE (MANUFACTURER UNKNOWN) [Suspect]
     Active Substance: METHOTREXATE
     Indication: RHEUMATOID ARTHRITIS
     Route: 065
     Dates: start: 201312, end: 201401
  8. FOLIC ACID. [Concomitant]
     Active Substance: FOLIC ACID
  9. METHOTREXATE (MANUFACTURER UNKNOWN) [Suspect]
     Active Substance: METHOTREXATE
     Route: 065
     Dates: start: 201401

REACTIONS (3)
  - Dyspnoea [Not Recovered/Not Resolved]
  - Pneumonitis [Fatal]
  - Hypoxia [Not Recovered/Not Resolved]

NARRATIVE: CASE EVENT DATE: 20140727
